FAERS Safety Report 16059812 (Version 1)
Quarter: 2019Q1

REPORT INFORMATION
  Report Type: Report from Study
  Country: US (occurrence: US)
  Receive Date: 20190311
  Receipt Date: 20190311
  Transmission Date: 20190418
  Serious: Yes (Hospitalization)
  Sender: FDA-Public Use
  Company Number: PHHO2017US001746

PATIENT
  Age: 59 Year
  Sex: Male
  Weight: 123.4 kg

DRUGS (8)
  1. COMPARATOR PACLITAXEL [Suspect]
     Active Substance: PACLITAXEL
     Dosage: 50 MG/M2, QW
     Route: 042
     Dates: start: 20150611, end: 20150731
  2. BLINDED NO TREATMENT RECEIVED [Suspect]
     Active Substance: INVESTIGATIONAL PRODUCT
     Indication: ANAPLASTIC THYROID CANCER
     Dosage: CODE NOT BROKEN
     Route: 048
     Dates: start: 20150528
  3. BLINDED PAZOPANIB [Suspect]
     Active Substance: PAZOPANIB
     Dosage: CODE NOT BROKEN
     Route: 048
     Dates: start: 20150611, end: 20150731
  4. BLINDED PACLITAXEL [Suspect]
     Active Substance: PACLITAXEL
     Indication: ANAPLASTIC THYROID CANCER
     Dosage: CODE NOT BROKEN
     Route: 048
     Dates: start: 20150528
  5. BLINDED NO TREATMENT RECEIVED [Suspect]
     Active Substance: INVESTIGATIONAL PRODUCT
     Dosage: CODE NOT BROKEN
     Route: 048
     Dates: start: 20150611, end: 20150731
  6. BLINDED PACLITAXEL [Suspect]
     Active Substance: PACLITAXEL
     Dosage: CODE NOT BROKEN
     Route: 048
     Dates: start: 20150611, end: 20150731
  7. COMPARATOR PACLITAXEL [Suspect]
     Active Substance: PACLITAXEL
     Indication: ANAPLASTIC THYROID CANCER
     Dosage: 80 MG/M2, QW
     Route: 042
     Dates: start: 20150528
  8. BLINDED PAZOPANIB [Suspect]
     Active Substance: PAZOPANIB
     Indication: ANAPLASTIC THYROID CANCER
     Dosage: CODE NOT BROKEN
     Route: 048
     Dates: start: 20150528

REACTIONS (5)
  - Hypocalcaemia [Recovered/Resolved]
  - Dehydration [Recovering/Resolving]
  - Herpes zoster [Recovering/Resolving]
  - Skin infection [Recovering/Resolving]
  - Electrocardiogram QT prolonged [Recovering/Resolving]

NARRATIVE: CASE EVENT DATE: 20150618
